FAERS Safety Report 9899323 (Version 2)
Quarter: 2014Q1

REPORT INFORMATION
  Report Type: Spontaneous
  Country: US (occurrence: US)
  Receive Date: 20140214
  Receipt Date: 20140214
  Transmission Date: 20141002
  Serious: Yes (Other)
  Sender: FDA-Public Use
  Company Number: US-TEVA-395799USA

PATIENT
  Age: 28 Year
  Sex: Female
  Weight: 49.94 kg

DRUGS (4)
  1. COPAXONE [Suspect]
     Indication: MULTIPLE SCLEROSIS
     Dates: start: 20120512, end: 20131227
  2. COPAXONE [Suspect]
     Dates: start: 20130601
  3. LOVENOX [Concomitant]
     Indication: PROPHYLAXIS
     Dates: start: 201301
  4. ASPIRIN [Concomitant]
     Dosage: 83 MILLIGRAM DAILY;

REACTIONS (2)
  - Caesarean section [Unknown]
  - Live birth [Unknown]
